FAERS Safety Report 14056855 (Version 1)
Quarter: 2017Q4

REPORT INFORMATION
  Report Type: Spontaneous
  Country: SE (occurrence: SE)
  Receive Date: 20171006
  Receipt Date: 20171006
  Transmission Date: 20180321
  Serious: Yes (Disabling)
  Sender: FDA-Public Use
  Company Number: SE-PFIZER INC-2017429508

PATIENT
  Age: 80 Year
  Sex: Male

DRUGS (3)
  1. XALATAN [Suspect]
     Active Substance: LATANOPROST
     Indication: EXFOLIATION GLAUCOMA
     Dosage: 1 DROP BY NIGHT FOR EXFOLIATION GLAUCOMA IN BOTH EYES
     Dates: start: 2007
  2. GANFORT [Concomitant]
     Active Substance: BIMATOPROST\TIMOLOL
  3. SIMBRINZA [Concomitant]
     Active Substance: BRIMONIDINE TARTRATE\BRINZOLAMIDE
     Dates: end: 20170921

REACTIONS (2)
  - Enophthalmos [Unknown]
  - Lagophthalmos [Unknown]

NARRATIVE: CASE EVENT DATE: 2016
